FAERS Safety Report 8916335 (Version 2)
Quarter: 2013Q1

REPORT INFORMATION
  Report Type: Spontaneous
  Country: JP (occurrence: JP)
  Receive Date: 20121120
  Receipt Date: 20130204
  Transmission Date: 20140127
  Serious: Yes (Hospitalization, Other)
  Sender: FDA-Public Use
  Company Number: JP-PFIZER INC-2012284725

PATIENT
  Age: 74 Year
  Sex: Female
  Weight: 47 kg

DRUGS (10)
  1. SUTENT [Suspect]
     Indication: RENAL CELL CARCINOMA
     Dosage: 37.5 MG, 1X/DAY
     Route: 048
     Dates: start: 20110729, end: 20110815
  2. SUTENT [Suspect]
     Dosage: 37.5 MG, 1X/DAY
     Route: 048
     Dates: start: 20120319, end: 20120413
  3. SUTENT [Suspect]
     Dosage: 37.5 MG, 1X/DAY
     Route: 048
     Dates: start: 20120509, end: 20120607
  4. GASTER D [Suspect]
     Indication: GASTROOESOPHAGEAL REFLUX DISEASE
     Dosage: 20 MG, 1X/DAY
     Route: 048
     Dates: start: 20110820
  5. OMEPRAL [Suspect]
     Indication: GASTROOESOPHAGEAL REFLUX DISEASE
     Dosage: 20 MG, 2X/DAY
     Route: 041
     Dates: start: 20120612, end: 20120618
  6. OXYCONTIN [Concomitant]
     Indication: CANCER PAIN
     Dosage: 20 MG, 2X/DAY
     Route: 048
     Dates: start: 20120412
  7. MAGMITT [Concomitant]
     Indication: CONSTIPATION
     Dosage: 330 MG, 3X/DAY
     Route: 048
     Dates: start: 20110805
  8. FERO GRADUMET [Concomitant]
     Indication: IRON DEFICIENCY ANAEMIA
     Dosage: 105 MG, 2X/DAY
     Route: 048
     Dates: start: 20120326
  9. LASIX [Concomitant]
     Dosage: 40 MG, 1X/DAY
     Route: 048
     Dates: start: 20120402
  10. RANMARK [Concomitant]
     Indication: METASTASES TO BONE
     Dosage: 120 MG, 1X/DAY
     Route: 041
     Dates: start: 20120615

REACTIONS (2)
  - Oesophageal candidiasis [Recovered/Resolved]
  - Gastrooesophageal reflux disease [Recovering/Resolving]
